FAERS Safety Report 20874699 (Version 2)
Quarter: 2022Q2

REPORT INFORMATION
  Report Type: Spontaneous
  Country: US (occurrence: None)
  Receive Date: 20220525
  Receipt Date: 20220606
  Transmission Date: 20220721
  Serious: No
  Sender: FDA-Public Use
  Company Number: US-Eisai Medical Research-EC-2022-114740

PATIENT
  Sex: Female

DRUGS (1)
  1. DAYVIGO [Suspect]
     Active Substance: LEMBOREXANT
     Indication: Product used for unknown indication
     Dosage: DOSE AND FREQUENCY UNKNOWN
     Route: 048
     Dates: start: 20220510

REACTIONS (8)
  - Drug ineffective [Unknown]
  - Insomnia [Unknown]
  - Dizziness [Unknown]
  - Gait disturbance [Unknown]
  - Depression [Unknown]
  - Fall [Unknown]
  - Anxiety [Unknown]
  - Chills [Unknown]

NARRATIVE: CASE EVENT DATE: 20220501
